FAERS Safety Report 8993504 (Version 1)
Quarter: 2013Q1

REPORT INFORMATION
  Report Type: Spontaneous
  Country: US (occurrence: US)
  Receive Date: 20130102
  Receipt Date: 20130102
  Transmission Date: 20140127
  Serious: Yes (Other)
  Sender: FDA-Public Use
  Company Number: CHPA2012US025905

PATIENT
  Sex: Female

DRUGS (1)
  1. PREVACID 24HR 15MG [Suspect]
     Indication: DYSPEPSIA
     Dosage: 15 MG A DAY
     Route: 048
     Dates: start: 20121221

REACTIONS (3)
  - Headache [Not Recovered/Not Resolved]
  - Somnolence [Unknown]
  - Off label use [Unknown]
